FAERS Safety Report 6551307-3 (Version None)
Quarter: 2010Q1

REPORT INFORMATION
  Report Type: 
  Country: None (occurrence: None)
  Receive Date: 20100120
  Receipt Date: 20100105
  Transmission Date: 20100710
  Serious: Yes (Life-Threatening, Hospitalization)
  Sender: FDA-Public Use
  Company Number: AUR-APL-2010-00033

PATIENT
  Age: 23 Year
  Sex: Female

DRUGS (7)
  1. AMOXICILLIN [Suspect]
  2. SERTRALINE HCL [Suspect]
  3. CLOZARIL [Suspect]
     Indication: SCHIZOPHRENIA
     Dosage: ~10 TABLETS - X1 - ORAL
     Route: 048
     Dates: end: 20060504
  4. HYOSCINE HBR HYT [Suspect]
  5. ANTIBIOTICS (UNSPECIFIED) [Suspect]
  6. MOCLOBEMIDE [Concomitant]
  7. SULPIRIDE [Concomitant]

REACTIONS (6)
  - ALANINE AMINOTRANSFERASE DECREASED [None]
  - LIVER FUNCTION TEST ABNORMAL [None]
  - LOSS OF CONSCIOUSNESS [None]
  - OVERDOSE [None]
  - VOMITING [None]
  - WEIGHT DECREASED [None]
